FAERS Safety Report 25871299 (Version 2)
Quarter: 2025Q4

REPORT INFORMATION
  Report Type: Spontaneous
  Country: US (occurrence: US)
  Receive Date: 20251001
  Receipt Date: 20251103
  Transmission Date: 20260118
  Serious: No
  Sender: PFIZER
  Company Number: US-PFIZER INC-202500193744

PATIENT
  Age: 53 Year
  Sex: Female

DRUGS (3)
  1. GENOTROPIN [Interacting]
     Active Substance: SOMATROPIN
     Indication: Hypopituitarism
     Dosage: UNK
  2. GENOTROPIN [Interacting]
     Active Substance: SOMATROPIN
     Indication: Growth hormone deficiency
  3. TRULICITY [Interacting]
     Active Substance: DULAGLUTIDE
     Dosage: UNK

REACTIONS (2)
  - Drug interaction [Unknown]
  - Gastrointestinal disorder [Unknown]
